FAERS Safety Report 17981048 (Version 3)
Quarter: 2020Q3

REPORT INFORMATION
  Report Type: Spontaneous
  Country: NO (occurrence: NO)
  Receive Date: 20200704
  Receipt Date: 20200803
  Transmission Date: 20201103
  Serious: Yes (Other)
  Sender: FDA-Public Use
  Company Number: NO-009507513-2007NOR000131

PATIENT
  Age: 29 Year
  Sex: Male

DRUGS (4)
  1. SINGULAIR [Suspect]
     Active Substance: MONTELUKAST SODIUM
     Indication: ASTHMA
     Dosage: 10 MILLIGRAM, QD, R03DC03 ? MONTELUKAST
     Route: 048
     Dates: start: 20200225, end: 20200305
  2. AERIUS [Concomitant]
     Dosage: UNK, R06AX27 ? DESLORATADIN
  3. VENTOLINE (ALBUTEROL) [Concomitant]
     Active Substance: ALBUTEROL
     Dosage: UNK, R03AC02 ? SALBUTAMOL
  4. SERETIDE [Concomitant]
     Active Substance: FLUTICASONE PROPIONATE\SALMETEROL XINAFOATE
     Dosage: UNK, R03AK06? SALMETEROL AND FLUTICASONE

REACTIONS (1)
  - Erectile dysfunction [Recovered/Resolved]
